FAERS Safety Report 19169960 (Version 2)
Quarter: 2021Q2

REPORT INFORMATION
  Report Type: Spontaneous
  Country: CA (occurrence: CA)
  Receive Date: 20210422
  Receipt Date: 20210610
  Transmission Date: 20210717
  Serious: Yes (Other)
  Sender: FDA-Public Use
  Company Number: CA-PFIZER INC-2021417409

PATIENT
  Age: 75 Year
  Sex: Female

DRUGS (1)
  1. RUXIENCE [Suspect]
     Active Substance: RITUXIMAB-PVVR
     Indication: RHEUMATOID ARTHRITIS
     Dosage: 1000 MG WEEK 0 AND WEEK 2
     Route: 042

REACTIONS (5)
  - Muscular weakness [Unknown]
  - Intentional product use issue [Unknown]
  - Polymyositis [Unknown]
  - Off label use [Unknown]
  - Arthritis [Unknown]
